FAERS Safety Report 18621389 (Version 3)
Quarter: 2021Q2

REPORT INFORMATION
  Report Type: Report from Study
  Country: JP (occurrence: JP)
  Receive Date: 20201216
  Receipt Date: 20210505
  Transmission Date: 20210717
  Serious: Yes (Death, Life-Threatening, Hospitalization, Other)
  Sender: FDA-Public Use
  Company Number: JP-ACCORD-210742

PATIENT
  Age: 8 Decade
  Sex: Male
  Weight: 65 kg

DRUGS (5)
  1. TADALAFIL. [Suspect]
     Active Substance: TADALAFIL
     Indication: HYPERTENSION
  2. TELMISARTAN. [Concomitant]
     Active Substance: TELMISARTAN
  3. AMLODIPINE [Suspect]
     Active Substance: AMLODIPINE BESYLATE
     Indication: HYPERTENSION
     Route: 048
  4. SILDENAFIL. [Suspect]
     Active Substance: SILDENAFIL
     Indication: HYPERTENSION
  5. ALCOHOL. [Concomitant]
     Active Substance: ALCOHOL

REACTIONS (11)
  - Fluid retention [Fatal]
  - Pericardial haemorrhage [Fatal]
  - Rib fracture [Fatal]
  - Heart injury [Fatal]
  - Prescription drug used without a prescription [Fatal]
  - Arteriosclerosis coronary artery [Fatal]
  - Coagulopathy [Fatal]
  - Coronary artery stenosis [Fatal]
  - Road traffic accident [Fatal]
  - Myocardial rupture [Fatal]
  - Altered state of consciousness [Fatal]
